FAERS Safety Report 5248872-5 (Version None)
Quarter: 2007Q1

REPORT INFORMATION
  Report Type: 
  Country: None (occurrence: None)
  Receive Date: 20070228
  Receipt Date: 20060329
  Transmission Date: 20070707
  Serious: No
  Sender: FDA-Public Use
  Company Number: US-GLAXOSMITHKLINE-A0599520A

PATIENT

DRUGS (1)
  1. VALTREX [Suspect]
     Indication: ENCEPHALITIS HERPES
     Route: 048

REACTIONS (4)
  - BLOOD HEAVY METAL INCREASED [None]
  - LABORATORY TEST ABNORMAL [None]
  - STOOL HEAVY METAL POSITIVE [None]
  - THERAPEUTIC RESPONSE UNEXPECTED [None]
